FAERS Safety Report 5463922-9 (Version None)
Quarter: 2007Q3

REPORT INFORMATION
  Report Type: 
  Country: None (occurrence: None)
  Receive Date: 20070921
  Receipt Date: 20070605
  Transmission Date: 20080115
  Serious: No
  Sender: FDA-Public Use
  Company Number: A0654240A

PATIENT
  Sex: Female

DRUGS (6)
  1. AVANDARYL [Suspect]
     Dosage: 1TAB PER DAY
     Route: 048
     Dates: start: 20070401
  2. SYNTHROID [Concomitant]
  3. VYTORIN [Concomitant]
  4. MULTI-VITAMIN [Concomitant]
  5. EYE DROPS [Concomitant]
     Indication: GLAUCOMA
  6. WATER PILL [Concomitant]

REACTIONS (2)
  - OEDEMA [None]
  - WEIGHT INCREASED [None]
